FAERS Safety Report 5210503-8 (Version None)
Quarter: 2006Q4

REPORT INFORMATION
  Report Type: 
  Country: None (occurrence: None)
  Receive Date: 20061106
  Receipt Date: 20051025
  Transmission Date: 20070319
  Serious: Yes (Hospitalization)
  Sender: FDA-Public Use
  Company Number: US-JNJFOC-20051005828

PATIENT
  Age: 48 Year
  Sex: Female
  Weight: 86.1834 kg

DRUGS (2)
  1. MOTRIN [Suspect]
     Indication: PREMEDICATION
     Dosage: 800 MG, 6 IN 1 WEEK, ORAL
     Route: 048
     Dates: start: 20050801, end: 20050930
  2. REBIF [Suspect]
     Indication: MULTIPLE SCLEROSIS
     Dosage: 44 UG, 3 IN 1 WEEK, SUBCUTANEOUS
     Route: 058
     Dates: start: 20050121

REACTIONS (1)
  - GASTRITIS [None]
